FAERS Safety Report 25647400 (Version 2)
Quarter: 2025Q3

REPORT INFORMATION
  Report Type: Spontaneous
  Country: US (occurrence: US)
  Receive Date: 20250806
  Receipt Date: 20250829
  Transmission Date: 20251021
  Serious: Yes (Life-Threatening, Hospitalization)
  Sender: TEVA
  Company Number: US-TEVA-VS-3358230

PATIENT
  Age: 35 Year
  Sex: Male

DRUGS (2)
  1. NALOXONE [Suspect]
     Active Substance: NALOXONE
     Indication: Catatonia
     Route: 065
  2. DEVICE [Suspect]
     Active Substance: DEVICE

REACTIONS (1)
  - Therapy non-responder [Unknown]
